FAERS Safety Report 5521176-9 (Version None)
Quarter: 2007Q4

REPORT INFORMATION
  Report Type: 
  Country: None (occurrence: None)
  Receive Date: 20071119
  Receipt Date: 20071109
  Transmission Date: 20080405
  Serious: Yes (Hospitalization)
  Sender: FDA-Public Use
  Company Number: US-ELI_LILLY_AND_COMPANY-US200711002518

PATIENT
  Sex: Male

DRUGS (8)
  1. ALIMTA [Suspect]
     Indication: ADENOCARCINOMA PANCREAS
     Dosage: 300 MG/M2, OTHER
     Route: 065
     Dates: start: 20071105
  2. LEVAQUIN [Concomitant]
     Dosage: UNK, DAILY (1/D)
     Route: 065
  3. COUMADIN [Concomitant]
     Dosage: 5 MG, EACH EVENING
     Route: 065
  4. MIRALAX [Concomitant]
     Dosage: UNK, DAILY (1/D)
     Route: 048
  5. LOVENOX [Concomitant]
     Dosage: 130 MG, OTHER
     Route: 058
  6. LOPRESSOR [Concomitant]
     Dosage: UNK, 2/D
     Route: 065
  7. SENOKOT [Concomitant]
     Dosage: 2 UNK, DAILY (1/D)
     Route: 048
  8. ASPIRIN [Concomitant]
     Dosage: UNK, DAILY (1/D)
     Route: 065

REACTIONS (5)
  - BLOOD ALBUMIN ABNORMAL [None]
  - BLOOD BILIRUBIN ABNORMAL [None]
  - BLOOD GLUCOSE ABNORMAL [None]
  - CHEST X-RAY ABNORMAL [None]
  - SUPRAVENTRICULAR TACHYCARDIA [None]
